FAERS Safety Report 5529607-5 (Version None)
Quarter: 2007Q4

REPORT INFORMATION
  Report Type: 
  Country: None (occurrence: None)
  Receive Date: 20071129
  Receipt Date: 20071120
  Transmission Date: 20080405
  Serious: Yes (Hospitalization)
  Sender: FDA-Public Use
  Company Number: US-WYE-H00889807

PATIENT
  Sex: Female

DRUGS (3)
  1. TYGACIL [Suspect]
     Indication: ABDOMINAL INFECTION
     Dosage: 100 MG LOADING DOSE, THEN 50 MG Q 12H
     Route: 042
     Dates: start: 20070912, end: 20070915
  2. ZOFRAN [Concomitant]
     Indication: PROPHYLAXIS OF NAUSEA AND VOMITING
     Dosage: UNKNOWN DOSE AROUND THE CLOCK
     Route: 042
     Dates: start: 20070101
  3. PHENERGAN HCL [Concomitant]
     Indication: PROPHYLAXIS OF NAUSEA AND VOMITING
     Dosage: UNKNOWN DOSE AROUND THE CLOCK
     Route: 042
     Dates: start: 20070101

REACTIONS (5)
  - ABDOMINAL ABSCESS [None]
  - BACTEROIDES INFECTION [None]
  - DRUG INEFFECTIVE [None]
  - NAUSEA [None]
  - PEPTOSTREPTOCOCCUS INFECTION [None]
